FAERS Safety Report 6915386-3 (Version None)
Quarter: 2010Q3

REPORT INFORMATION
  Report Type: 
  Country: None (occurrence: None)
  Receive Date: 20100809
  Receipt Date: 20100406
  Transmission Date: 20110219
  Serious: No
  Sender: FDA-Public Use
  Company Number: US-ABBOTT-10P-163-0638184-00

PATIENT
  Sex: Male
  Weight: 85.352 kg

DRUGS (3)
  1. DEPAKOTE ER [Suspect]
     Indication: DEPRESSION
     Dosage: AT BED TIME
     Route: 048
     Dates: start: 20080101
  2. DEPAKOTE ER [Suspect]
     Indication: AFFECTIVE DISORDER
  3. SEROQUEL [Suspect]
     Indication: AFFECTIVE DISORDER

REACTIONS (2)
  - SOMNOLENCE [None]
  - WEIGHT INCREASED [None]
